FAERS Safety Report 25282601 (Version 1)
Quarter: 2025Q2

REPORT INFORMATION
  Report Type: Spontaneous
  Country: US (occurrence: US)
  Receive Date: 20250508
  Receipt Date: 20250508
  Transmission Date: 20250716
  Serious: No
  Sender: ABBVIE
  Company Number: US-ABBVIE-6262726

PATIENT
  Age: 72 Year
  Sex: Female

DRUGS (3)
  1. RESTASIS [Suspect]
     Active Substance: CYCLOSPORINE
     Indication: Product used for unknown indication
     Route: 047
     Dates: start: 20250414, end: 20250414
  2. RESTASIS [Suspect]
     Active Substance: CYCLOSPORINE
     Route: 047
  3. RESTASIS [Suspect]
     Active Substance: CYCLOSPORINE
     Route: 047
     Dates: start: 202504

REACTIONS (5)
  - Product contamination physical [Unknown]
  - Suspected product contamination [Unknown]
  - Poor quality product administered [Unknown]
  - Foreign body sensation in eyes [Unknown]
  - Eye irritation [Unknown]

NARRATIVE: CASE EVENT DATE: 20250401
